FAERS Safety Report 9159209 (Version 1)
Quarter: 2013Q1

REPORT INFORMATION
  Report Type: Spontaneous
  Country: US (occurrence: None)
  Receive Date: 20130311
  Receipt Date: 20130311
  Transmission Date: 20140127
  Serious: Yes (Death, Life-Threatening, Hospitalization, Other)
  Sender: FDA-Public Use
  Company Number: CIP-2013-00056

PATIENT
  Sex: Female

DRUGS (9)
  1. CARBOPLATIN [Suspect]
     Indication: OVARIAN CANCER
     Dosage: AUC 5 (DAY 1; REPEATED 21 DAYS; DOSE LEVEL I-II), INTRAPERITONEAL
  2. CARBOPLATIN [Suspect]
     Indication: FALLOPIAN TUBE CANCER
     Dosage: AUC 5 (DAY 1; REPEATED 21 DAYS; DOSE LEVEL I-II), INTRAPERITONEAL
  3. CARBOPLATIN [Suspect]
     Indication: MALIGNANT PERITONEAL NEOPLASM
     Dosage: AUC 5 (DAY 1; REPEATED 21 DAYS; DOSE LEVEL I-II), INTRAPERITONEAL
  4. PACLITAXEL [Suspect]
     Indication: OVARIAN CANCER
     Dosage: (60 MG/M2, DAY 8; REPEATED EVERY 21 DAYS), INTRAPERITONEAL
  5. PACLITAXEL [Suspect]
     Indication: FALLOPIAN TUBE CANCER
     Dosage: (60 MG/M2, DAY 8; REPEATED EVERY 21 DAYS), INTRAPERITONEAL
  6. PACLITAXEL [Suspect]
     Indication: MALIGNANT PERITONEAL NEOPLASM
     Dosage: (60 MG/M2, DAY 8; REPEATED EVERY 21 DAYS), INTRAPERITONEAL
  7. DOCETAXEL [Suspect]
     Indication: OVARIAN CANCER
     Dosage: (65 MG/M2, DAY 1; DOSE LEVEL I), INTRAVENOUS (NOT OTHERWISE SPECIFIED)?
     Route: 042
  8. DOCETAXEL [Suspect]
     Indication: FALLOPIAN TUBE CANCER
     Dosage: (65 MG/M2, DAY 1; DOSE LEVEL I), INTRAVENOUS (NOT OTHERWISE SPECIFIED)?
     Route: 042
  9. DOCETAXEL [Suspect]
     Indication: MALIGNANT PERITONEAL NEOPLASM
     Dosage: (65 MG/M2, DAY 1; DOSE LEVEL I), INTRAVENOUS (NOT OTHERWISE SPECIFIED)?
     Route: 042

REACTIONS (10)
  - Enterovesical fistula [None]
  - Nausea [None]
  - Vomiting [None]
  - Diarrhoea [None]
  - Dehydration [None]
  - Hypotension [None]
  - Respiratory arrest [None]
  - Hypocalcaemia [None]
  - Sepsis [None]
  - Pancytopenia [None]
